FAERS Safety Report 10474042 (Version 1)
Quarter: 2014Q3

REPORT INFORMATION
  Report Type: Spontaneous
  Country: US (occurrence: US)
  Receive Date: 20140924
  Receipt Date: 20140924
  Transmission Date: 20150326
  Serious: Yes (Other)
  Sender: FDA-Public Use
  Company Number: US-GLAXOSMITHKLINE-A1090735A

PATIENT
  Sex: Female

DRUGS (2)
  1. LAMICTAL XR [Suspect]
     Active Substance: LAMOTRIGINE
     Route: 065
  2. KEPPRA XR [Suspect]
     Active Substance: LEVETIRACETAM

REACTIONS (5)
  - Feeling abnormal [Unknown]
  - Frustration [Unknown]
  - Convulsion [Unknown]
  - Dizziness [Unknown]
  - Feeling hot [Unknown]
